FAERS Safety Report 21774235 (Version 1)
Quarter: 2022Q4

REPORT INFORMATION
  Report Type: Report from Study
  Country: GB (occurrence: GB)
  Receive Date: 20221224
  Receipt Date: 20221224
  Transmission Date: 20230113
  Serious: Yes (Death, Hospitalization)
  Sender: FDA-Public Use
  Company Number: GB-CELLTRION INC.-2022GB021430

PATIENT

DRUGS (24)
  1. TRASTUZUMAB [Suspect]
     Active Substance: TRASTUZUMAB
     Indication: Breast cancer metastatic
     Route: 042
  2. TRASTUZUMAB [Suspect]
     Active Substance: TRASTUZUMAB
     Indication: Breast cancer metastatic
     Dosage: 1 DOSE, EVERY 3 WEEKS
     Route: 042
     Dates: start: 20170216, end: 20170309
  3. TRASTUZUMAB [Suspect]
     Active Substance: TRASTUZUMAB
     Dosage: 1 DOSE, EVERY 3 WEEKS
     Route: 042
     Dates: start: 20170216, end: 20170309
  4. TRASTUZUMAB [Suspect]
     Active Substance: TRASTUZUMAB
     Dosage: 1 DOSE, EVERY 3 WEEKS
     Route: 042
     Dates: start: 20170216, end: 20170309
  5. TRASTUZUMAB [Suspect]
     Active Substance: TRASTUZUMAB
     Dosage: 1 DOSE, EVERY 3 WEEKS
     Route: 042
     Dates: start: 20171208
  6. TRASTUZUMAB [Suspect]
     Active Substance: TRASTUZUMAB
     Dosage: 1 DOSE, EVERY 3 WEEKS
     Route: 042
     Dates: start: 20171208
  7. TRASTUZUMAB [Suspect]
     Active Substance: TRASTUZUMAB
     Dosage: 1 DOSE, EVERY 3 WEEKS
     Route: 042
     Dates: start: 20171208
  8. TRASTUZUMAB [Suspect]
     Active Substance: TRASTUZUMAB
     Dosage: 1 DOSE, EVERY 3 WEEKS
     Route: 042
     Dates: start: 20170310
  9. TRASTUZUMAB [Suspect]
     Active Substance: TRASTUZUMAB
     Dosage: 1 DOSE, EVERY 3 WEEKS
     Route: 042
     Dates: start: 20170310
  10. TRASTUZUMAB [Suspect]
     Active Substance: TRASTUZUMAB
     Dosage: 1 DOSE, EVERY 3 WEEKS
     Route: 042
     Dates: start: 20170310
  11. DOCETAXEL [Suspect]
     Active Substance: DOCETAXEL
     Indication: Breast cancer metastatic
     Dosage: 1 DOSE, EVERY 3 WEEKS
     Route: 042
     Dates: start: 20170216, end: 20170602
  12. PERTUZUMAB [Suspect]
     Active Substance: PERTUZUMAB
     Indication: Breast cancer metastatic
     Dosage: UNK
     Route: 042
     Dates: start: 20170310
  13. PERTUZUMAB [Suspect]
     Active Substance: PERTUZUMAB
     Dosage: UNK
     Route: 042
     Dates: start: 20170310
  14. PERTUZUMAB [Suspect]
     Active Substance: PERTUZUMAB
     Dosage: 1 DOSE, EVERY 3 WEEKS
     Route: 042
     Dates: start: 20170216, end: 20170309
  15. PERTUZUMAB [Suspect]
     Active Substance: PERTUZUMAB
     Dosage: 1 DOSE, EVERY 3 WEEKS
     Route: 042
     Dates: start: 20170216, end: 20170309
  16. DENOSUMAB [Concomitant]
     Active Substance: DENOSUMAB
     Dosage: 1 DOSE, EVERY 6 WEEKS
     Route: 058
     Dates: start: 20170714
  17. DEXAMETHASONE [Concomitant]
     Active Substance: DEXAMETHASONE
     Dosage: 8 MG, TAKEN FOR 3 DAYS AFTER EACH CHEMO.
     Route: 048
  18. LOPERAMIDE [Concomitant]
     Active Substance: LOPERAMIDE
     Indication: Constipation
     Dosage: UNK
     Route: 048
     Dates: start: 20170714
  19. METOCLOPRAMIDE [Concomitant]
     Active Substance: METOCLOPRAMIDE
     Dosage: 10 MG
     Route: 048
  20. OMEPRAZOLE [Concomitant]
     Active Substance: OMEPRAZOLE
  21. ONDANSETRON [Concomitant]
     Active Substance: ONDANSETRON
     Dosage: 8 MG
     Route: 048
  22. ACETAMINOPHEN [Concomitant]
     Active Substance: ACETAMINOPHEN
     Dosage: 2 TABLET FOUR TIMES A DAY
     Route: 048
  23. QUININE SULFATE [Concomitant]
     Active Substance: QUININE SULFATE
     Indication: Muscle spasms
     Dosage: 1 DOSE, 1/DAY
     Route: 048
  24. TRAMADOL [Concomitant]
     Active Substance: TRAMADOL
     Dosage: 200 MG, 1/DAY
     Route: 048

REACTIONS (3)
  - Death [Fatal]
  - Nausea [Recovered/Resolved]
  - Vomiting [Recovered/Resolved]

NARRATIVE: CASE EVENT DATE: 20220418
